FAERS Safety Report 6120270-1 (Version None)
Quarter: 2009Q1

REPORT INFORMATION
  Report Type: 
  Country: None (occurrence: None)
  Receive Date: 20090312
  Receipt Date: 20090303
  Transmission Date: 20090719
  Serious: Yes (Death)
  Sender: FDA-Public Use
  Company Number: MEDI-0007692

PATIENT
  Age: 4 Month
  Sex: Male
  Weight: 4.3908 kg

DRUGS (6)
  1. SYNAGIS [Suspect]
     Indication: MULTIPLE PREGNANCY
     Dosage: 15 MG/KG INTRAMUSCULAR; INJECTION
     Route: 030
     Dates: start: 20081125, end: 20081223
  2. SYNAGIS [Suspect]
     Indication: OVERCROWDED HOUSING
     Dosage: 15 MG/KG INTRAMUSCULAR; INJECTION
     Route: 030
     Dates: start: 20081125, end: 20081223
  3. SYNAGIS [Suspect]
     Indication: PREMATURE BABY
     Dosage: 15 MG/KG INTRAMUSCULAR; INJECTION
     Route: 030
     Dates: start: 20081125, end: 20081223
  4. SYNAGIS [Suspect]
     Indication: MULTIPLE PREGNANCY
     Dosage: 15 MG/KG INTRAMUSCULAR; INJECTION
     Route: 030
     Dates: start: 20081125
  5. SYNAGIS [Suspect]
     Indication: OVERCROWDED HOUSING
     Dosage: 15 MG/KG INTRAMUSCULAR; INJECTION
     Route: 030
     Dates: start: 20081125
  6. SYNAGIS [Suspect]
     Indication: PREMATURE BABY
     Dosage: 15 MG/KG INTRAMUSCULAR; INJECTION
     Route: 030
     Dates: start: 20081125

REACTIONS (2)
  - FOREIGN BODY ASPIRATION [None]
  - RESPIRATORY ARREST [None]
